FAERS Safety Report 5808528-4 (Version None)
Quarter: 2008Q3

REPORT INFORMATION
  Report Type: 
  Country: None (occurrence: None)
  Receive Date: 20080709
  Receipt Date: 20080709
  Transmission Date: 20090109
  Serious: Yes (Hospitalization)
  Sender: FDA-Public Use
  Company Number: None

PATIENT
  Age: 88 Year
  Sex: Male
  Weight: 116 kg

DRUGS (1)
  1. METOPROLOL TARTRATE [Suspect]
     Indication: HYPERTENSION
     Dosage: 1 TAB EVERY DAY PO
     Route: 048
     Dates: start: 20071208, end: 20080528

REACTIONS (8)
  - ABDOMINAL PAIN LOWER [None]
  - ARTHRALGIA [None]
  - ATRIAL FIBRILLATION [None]
  - BACTERIA URINE IDENTIFIED [None]
  - BRADYCARDIA [None]
  - OEDEMA PERIPHERAL [None]
  - URINE ANALYSIS ABNORMAL [None]
  - WHITE BLOOD CELLS URINE POSITIVE [None]
